FAERS Safety Report 5195573-8 (Version None)
Quarter: 2006Q4

REPORT INFORMATION
  Report Type: 
  Country: None (occurrence: None)
  Receive Date: 20061226
  Receipt Date: 20061226
  Transmission Date: 20070319
  Serious: Yes (Other)
  Sender: FDA-Public Use
  Company Number: None

PATIENT
  Age: 36 Year
  Sex: Male
  Weight: 71.6683 kg

DRUGS (2)
  1. CIPROFLOXACIN [Suspect]
     Indication: ARTHRITIS INFECTIVE
     Dosage: 500 MG TWICE A DAY IV DRIP
     Route: 041
     Dates: start: 20050714, end: 20050828
  2. NAPROXEN [Concomitant]

REACTIONS (5)
  - ANXIETY [None]
  - CEREBRAL DISORDER [None]
  - DEPRESSION [None]
  - INSOMNIA [None]
  - PANIC ATTACK [None]
